FAERS Safety Report 5347873-6 (Version None)
Quarter: 2007Q2

REPORT INFORMATION
  Report Type: 
  Country: None (occurrence: None)
  Receive Date: 20070606
  Receipt Date: 20070604
  Transmission Date: 20071010
  Serious: Yes (Life-Threatening, Hospitalization, Other)
  Sender: FDA-Public Use
  Company Number: US-MERCK-0704USA00804

PATIENT
  Age: 75 Year
  Sex: Male

DRUGS (4)
  1. JANUVIA [Suspect]
     Indication: DIABETES MELLITUS NON-INSULIN-DEPENDENT
     Route: 048
  2. JANUVIA [Suspect]
     Indication: HYPERGLYCAEMIA
     Route: 048
  3. CRESTOR [Concomitant]
     Route: 065
  4. GLIPIZIDE [Concomitant]
     Route: 065

REACTIONS (3)
  - MYOGLOBIN BLOOD INCREASED [None]
  - RENAL IMPAIRMENT [None]
  - SHOCK HYPOGLYCAEMIC [None]
